FAERS Safety Report 4482925-4 (Version None)
Quarter: 2004Q4

REPORT INFORMATION
  Report Type: 
  Country: None (occurrence: None)
  Receive Date: 20041022
  Receipt Date: 20041004
  Transmission Date: 20050328
  Serious: Yes (Hospitalization, Disabling, Other)
  Sender: FDA-Public Use
  Company Number: US-MERCK-0410USA00345

PATIENT
  Age: 66 Year
  Sex: Male

DRUGS (28)
  1. VIOXX [Suspect]
     Indication: ARTHRITIS
     Route: 048
     Dates: start: 20000101, end: 20040301
  2. VIOXX [Suspect]
     Route: 048
     Dates: start: 20040813, end: 20040910
  3. VIOXX [Suspect]
     Route: 048
     Dates: end: 20000101
  4. VIOXX [Suspect]
     Indication: INFLAMMATION
     Route: 048
     Dates: start: 20000101, end: 20040301
  5. VIOXX [Suspect]
     Route: 048
     Dates: start: 20040813, end: 20040910
  6. VIOXX [Suspect]
     Route: 048
     Dates: end: 20000101
  7. CENTRUM [Concomitant]
     Route: 065
  8. LASIX [Concomitant]
     Route: 065
  9. K-DUR 10 [Concomitant]
     Route: 065
  10. LIPITOR [Concomitant]
     Route: 065
  11. BEXTRA [Concomitant]
     Route: 065
     Dates: end: 20040201
  12. BEXTRA [Concomitant]
     Route: 065
     Dates: start: 20040701, end: 20040801
  13. LEXAPRO [Concomitant]
     Route: 065
  14. AMBIEN [Concomitant]
     Route: 065
  15. CORDARONE [Concomitant]
     Route: 065
  16. ROBAXIN [Concomitant]
     Route: 065
  17. LORCET-HD [Concomitant]
     Route: 065
  18. AGGRENOX [Concomitant]
     Route: 065
  19. ATENOLOL [Concomitant]
     Route: 065
  20. PRILOSEC [Concomitant]
     Route: 048
  21. HYDROCHLOROTHIAZIDE [Concomitant]
     Route: 065
  22. FELDENE [Concomitant]
     Route: 065
  23. ALTACE [Concomitant]
     Route: 065
  24. PRAVACHOL [Concomitant]
     Route: 065
  25. WELLBUTRIN [Concomitant]
     Route: 065
  26. PROZAC [Concomitant]
     Route: 065
  27. DURAGESIC [Concomitant]
     Route: 065
  28. FLEXERIL [Concomitant]
     Route: 048

REACTIONS (6)
  - BACK PAIN [None]
  - CEREBROVASCULAR ACCIDENT [None]
  - FALL [None]
  - RADICULOPATHY [None]
  - SKIN DISORDER [None]
  - THERMAL BURN [None]
